FAERS Safety Report 10219752 (Version 1)
Quarter: 2014Q2

REPORT INFORMATION
  Report Type: Spontaneous
  Country: IT (occurrence: IT)
  Receive Date: 20140605
  Receipt Date: 20140605
  Transmission Date: 20141212
  Serious: Yes (Hospitalization, Other)
  Sender: FDA-Public Use
  Company Number: IT-WATSON-2014-12335

PATIENT
  Sex: Male

DRUGS (1)
  1. CITALOPRAM (UNKNOWN) [Suspect]
     Indication: MAJOR DEPRESSION
     Dosage: 20 MG, DAILY
     Route: 064

REACTIONS (5)
  - Serotonin syndrome [Recovered/Resolved]
  - Withdrawal syndrome [Recovered/Resolved]
  - Hypertonia neonatal [Recovered/Resolved]
  - Tremor neonatal [Recovered/Resolved]
  - Foetal exposure during pregnancy [Recovered/Resolved]
